FAERS Safety Report 4878576-X (Version None)
Quarter: 2006Q1

REPORT INFORMATION
  Report Type: 
  Country: None (occurrence: None)
  Receive Date: 20060112
  Receipt Date: 20060109
  Transmission Date: 20060701
  Serious: Yes (Other)
  Sender: FDA-Public Use
  Company Number: PHFR2006GB00506

PATIENT
  Age: 10 Year
  Sex: Male
  Weight: 26.5 kg

DRUGS (2)
  1. CONCERTA [Suspect]
     Indication: ATTENTION DEFICIT/HYPERACTIVITY DISORDER
     Dosage: 18MG/DAY
     Route: 048
     Dates: start: 20030101, end: 20050701
  2. RITALIN [Suspect]
     Indication: ATTENTION DEFICIT/HYPERACTIVITY DISORDER
     Dosage: 10MG/DAY
     Route: 048
     Dates: start: 20030101, end: 20050701

REACTIONS (4)
  - AGGRESSION [None]
  - DRUG WITHDRAWAL SYNDROME [None]
  - GROWTH RETARDATION [None]
  - SUICIDAL IDEATION [None]
